FAERS Safety Report 8784287 (Version 6)
Quarter: 2013Q3

REPORT INFORMATION
  Report Type: Report from Study
  Country: JP (occurrence: JP)
  Receive Date: 20120913
  Receipt Date: 20130716
  Transmission Date: 20140515
  Serious: Yes (Hospitalization, Other)
  Sender: FDA-Public Use
  Company Number: JP-VERTEX PHARMACEUTICAL INC.-AE-2012-006746

PATIENT
  Age: 61 Year
  Sex: Female

DRUGS (16)
  1. VX-950 (TELAPREVIR) [Suspect]
     Indication: CHRONIC HEPATITIS C
     Dosage: 2250 MG, QD
     Route: 048
     Dates: start: 20120405, end: 20120426
  2. VX-950 (TELAPREVIR) [Suspect]
     Dosage: 1500 MG, QD
     Route: 048
     Dates: start: 20120427, end: 20120502
  3. VX-950 (TELAPREVIR) [Suspect]
     Dosage: DISCONTINUED
     Dates: start: 20120502
  4. VX-950 (TELAPREVIR) [Suspect]
     Dosage: 1500 MG, QD
     Route: 048
     Dates: start: 20120822, end: 20120823
  5. REBETOL [Suspect]
     Indication: CHRONIC HEPATITIS C
     Dosage: 600 MG, QD
     Route: 048
     Dates: start: 20120405, end: 20120426
  6. REBETOL [Suspect]
     Dosage: 400 MG, QD
     Route: 048
     Dates: start: 20120427, end: 20120517
  7. REBETOL [Suspect]
     Dosage: 200 MG, QD
     Route: 048
     Dates: start: 20120518
  8. PEGINTRON [Concomitant]
     Dosage: 1.5 ?G/KG, QW
     Route: 058
     Dates: start: 20120405, end: 20120502
  9. PEGINTRON [Concomitant]
     Dosage: 1.2 ?G/KG, QW
     Route: 058
     Dates: start: 20120509, end: 20120516
  10. PEGINTRON [Concomitant]
     Dosage: 1.5 ?G/KG, WEEKLY
     Route: 058
     Dates: start: 20120523
  11. GLYCYRON [Concomitant]
     Dosage: 6 DF, QD
     Route: 048
  12. ALLEGRA [Concomitant]
     Dosage: 120 MG, QD
     Route: 048
     Dates: end: 20120606
  13. LOXOPROFEN [Concomitant]
     Dosage: 60 MG, PRN
     Route: 048
  14. MUCOSTA [Concomitant]
     Dosage: 100 MG, PRN
     Route: 048
  15. PREDONINE [Concomitant]
     Dosage: 10 MG, QD
     Route: 048
     Dates: start: 20120510, end: 20120515
  16. PREDONINE [Concomitant]
     Dosage: 5 MG, QD
     Route: 048
     Dates: start: 20120516

REACTIONS (3)
  - Erythema multiforme [Recovered/Resolved]
  - Rash generalised [Recovered/Resolved]
  - Haemoglobin decreased [Recovered/Resolved]
